FAERS Safety Report 25925149 (Version 1)
Quarter: 2025Q4

REPORT INFORMATION
  Report Type: Spontaneous
  Country: CA (occurrence: CA)
  Receive Date: 20251015
  Receipt Date: 20251015
  Transmission Date: 20260117
  Serious: Yes (Other)
  Sender: SANDOZ
  Company Number: CA-SANDOZ-SDZ2025CA076220

PATIENT

DRUGS (1)
  1. MOMETASONE FUROATE [Suspect]
     Active Substance: MOMETASONE FUROATE
     Indication: Vasomotor rhinitis
     Dosage: UNK
     Route: 065

REACTIONS (3)
  - Dacryocanaliculitis [Not Recovered/Not Resolved]
  - Blepharitis [Not Recovered/Not Resolved]
  - Dacryocystitis [Not Recovered/Not Resolved]
